FAERS Safety Report 17240934 (Version 2)
Quarter: 2020Q1

REPORT INFORMATION
  Report Type: Other
  Country: CA (occurrence: CA)
  Receive Date: 20200107
  Receipt Date: 20200302
  Transmission Date: 20200409
  Serious: Yes (Other)
  Sender: FDA-Public Use
  Company Number: CA-APOTEX-2019AP026869

PATIENT
  Age: 55 Year
  Sex: Female
  Weight: 63 kg

DRUGS (3)
  1. LEFLUNOMIDE. [Suspect]
     Active Substance: LEFLUNOMIDE
     Indication: PRODUCT USED FOR UNKNOWN INDICATION
     Dosage: UNK
     Route: 065
  2. LEFLUNOMIDE. [Suspect]
     Active Substance: LEFLUNOMIDE
     Dosage: UNK
     Route: 048
  3. METHOTREXATE. [Suspect]
     Active Substance: METHOTREXATE
     Indication: RHEUMATOID ARTHRITIS
     Dosage: 25 MG, Q.WK.
     Route: 058

REACTIONS (10)
  - Cough [Unknown]
  - Aphonia [Unknown]
  - Bronchitis [Unknown]
  - Pyrexia [Unknown]
  - Gastrointestinal disorder [Unknown]
  - Pneumonia [Unknown]
  - Pain [Unknown]
  - Influenza [Unknown]
  - Diarrhoea [Unknown]
  - Nasopharyngitis [Unknown]
